FAERS Safety Report 15352892 (Version 2)
Quarter: 2018Q4

REPORT INFORMATION
  Report Type: Report from Study
  Country: US (occurrence: US)
  Receive Date: 20180905
  Receipt Date: 20181015
  Transmission Date: 20190204
  Serious: No
  Sender: FDA-Public Use
  Company Number: US-MYLANLABS-2018M1064272

PATIENT
  Age: 65 Year
  Sex: Female
  Weight: 64 kg

DRUGS (1)
  1. GLATIRAMER ACETATE INJECTION [Suspect]
     Active Substance: GLATIRAMER ACETATE
     Indication: RELAPSING-REMITTING MULTIPLE SCLEROSIS
     Dosage: 40 MG, FOR 5 WEEKS
     Route: 030
     Dates: start: 20180822, end: 20180921

REACTIONS (17)
  - Diarrhoea [Recovered/Resolved]
  - Anxiety [Unknown]
  - Muscle spasms [Not Recovered/Not Resolved]
  - Ill-defined disorder [Recovered/Resolved]
  - Limb mass [Recovering/Resolving]
  - Vomiting [Unknown]
  - Pain [Recovered/Resolved]
  - Underdose [Unknown]
  - Limb discomfort [Recovering/Resolving]
  - Injection site warmth [Recovering/Resolving]
  - Pain in extremity [Not Recovered/Not Resolved]
  - Influenza like illness [Recovered/Resolved]
  - Injection site swelling [Recovering/Resolving]
  - Burning sensation [Recovering/Resolving]
  - Injection site pain [Recovering/Resolving]
  - Injection site erythema [Recovering/Resolving]
  - Headache [Recovering/Resolving]

NARRATIVE: CASE EVENT DATE: 20180823
